FAERS Safety Report 4998102-4 (Version None)
Quarter: 2006Q2

REPORT INFORMATION
  Report Type: 
  Country: None (occurrence: None)
  Receive Date: 20060510
  Receipt Date: 20050414
  Transmission Date: 20061013
  Serious: Yes (Hospitalization, Disabling)
  Sender: FDA-Public Use
  Company Number: US-MERCK-0504USA02609

PATIENT
  Age: 48 Year
  Sex: Female
  Weight: 120 kg

DRUGS (3)
  1. VIOXX [Suspect]
     Indication: CHEST PAIN
     Route: 048
     Dates: start: 20030801, end: 20040301
  2. SYNTHROID [Concomitant]
     Route: 065
  3. DIURETIC (UNSPECIFIED) [Concomitant]
     Route: 065

REACTIONS (8)
  - AORTIC ANEURYSM [None]
  - BLOOD CHOLESTEROL INCREASED [None]
  - CHEST PAIN [None]
  - DIABETES MELLITUS [None]
  - HYPERTENSION [None]
  - HYPOAESTHESIA [None]
  - LUNG NEOPLASM [None]
  - OEDEMA PERIPHERAL [None]
